FAERS Safety Report 7221607-2 (Version None)
Quarter: 2011Q1

REPORT INFORMATION
  Report Type: 
  Country: None (occurrence: None)
  Receive Date: 20110112
  Receipt Date: 20110106
  Transmission Date: 20110831
  Serious: Yes (Other)
  Sender: FDA-Public Use
  Company Number: CHPA2011GB00668

PATIENT
  Age: 24 Day
  Sex: Male

DRUGS (3)
  1. FERROUS SULFATE [Suspect]
     Dosage: MATERNAL DOSE: 3.0 G ELEMENTAL IRON, UNK
     Route: 064
  2. PARACETAMOL [Suspect]
     Dosage: MATERNAL DOSE: 7.5 G, UNK
     Route: 064
  3. DRUG THERAPY NOS [Suspect]
     Dosage: MATERNAL DOSE: 15 CAPSULES, UNK
     Route: 064

REACTIONS (6)
  - ABDOMINAL PAIN [None]
  - CONSTIPATION [None]
  - DRUG EXPOSURE DURING PREGNANCY [None]
  - OVERDOSE [None]
  - MATERNAL DRUGS AFFECTING FOETUS [None]
  - GASTROINTESTINAL INFLAMMATION [None]
